FAERS Safety Report 8791282 (Version 4)
Quarter: 2013Q1

REPORT INFORMATION
  Report Type: Spontaneous
  Country: FR (occurrence: None)
  Receive Date: 20120911
  Receipt Date: 20121217
  Transmission Date: 20140127
  Serious: Yes (Hospitalization)
  Sender: FDA-Public Use
  Company Number: SP06054

PATIENT
  Age: 59 Year
  Sex: Female

DRUGS (10)
  1. OSMOPREP [Suspect]
     Indication: BOWEL PREPARATION
     Route: 048
     Dates: start: 20120905, end: 20120905
  2. ANAFRANIL [Concomitant]
  3. URBANYL [Concomitant]
  4. ASPEGIC [Concomitant]
  5. CRESTOR [Concomitant]
  6. LEVOTHYROXINE [Concomitant]
  7. ALTEISDUO [Concomitant]
  8. MOVICOL [Concomitant]
  9. PROTELOS [Concomitant]
  10. CALCIUM CARBONATE [Concomitant]

REACTIONS (10)
  - Grand mal convulsion [None]
  - Blood sodium decreased [None]
  - Blood potassium decreased [None]
  - Blood chloride decreased [None]
  - Blood calcium decreased [None]
  - Coma scale abnormal [None]
  - Agitation [None]
  - Eye movement disorder [None]
  - Spinal compression fracture [None]
  - Drug hypersensitivity [None]
